FAERS Safety Report 5699578-X (Version None)
Quarter: 2008Q2

REPORT INFORMATION
  Report Type: 
  Country: None (occurrence: None)
  Receive Date: 20080408
  Receipt Date: 20080408
  Transmission Date: 20081010
  Serious: Yes (Other)
  Sender: FDA-Public Use
  Company Number: None

PATIENT
  Sex: Female
  Weight: 111.5849 kg

DRUGS (1)
  1. DARVOCET-N 100 [Suspect]
     Dosage: ONCE TAB Q 6 HR PRN
     Dates: start: 20080324, end: 20080403

REACTIONS (3)
  - IRRITABLE BOWEL SYNDROME [None]
  - NAUSEA [None]
  - STOMACH DISCOMFORT [None]
